FAERS Safety Report 7693643-3 (Version None)
Quarter: 2011Q3

REPORT INFORMATION
  Report Type: 
  Country: None (occurrence: None)
  Receive Date: 20110819
  Receipt Date: 20110817
  Transmission Date: 20111222
  Serious: Yes (Life-Threatening, Hospitalization)
  Sender: FDA-Public Use
  Company Number: DE-ROCHE-792539

PATIENT
  Sex: Female
  Weight: 54.5 kg

DRUGS (7)
  1. METOCLOPRAMIDE [Concomitant]
     Indication: NAUSEA
     Dosage: GTT:DROPS.4 DROPS PER DAY OR AS NECESSARY
     Route: 048
     Dates: start: 20110711
  2. CAPECITABINE [Suspect]
     Indication: RECTAL CANCER
     Dosage: LAST DOSE PRIOIR TO SAE:18 JULY 2011.SCHEDULE DRUG:825 MG/M2. TREATMENT DELAYED
     Route: 048
     Dates: start: 20110704
  3. NYSTATIN [Concomitant]
     Dosage: GTT:DROPS 6 DROPS PER DAY
     Route: 048
     Dates: start: 20110718
  4. FEMOSTON CONTI [Concomitant]
     Indication: MENOPAUSAL SYMPTOMS
     Route: 048
  5. STOMATITIS COCKTAIL (BENADRYL/CARAFATE/LIDOCAINE/NYSTATIN) [Concomitant]
     Dosage: DOSE AS NEEDED
     Route: 048
     Dates: start: 20110718
  6. OXALIPLATIN [Suspect]
     Indication: RECTAL CANCER
     Dosage: LAST DOSE PRIOR TO SAE 18 JULY 2011, SCHEDULED DRUG DOSE 50MG/M2 IV. TREATMENT DELAYED.
     Route: 042
     Dates: start: 20110704
  7. LEVOTHYROXINE SODIUM [Concomitant]
     Indication: HYPOTHYROIDISM
     Dosage: FREQUENCY:DAILY
     Route: 048

REACTIONS (6)
  - ABDOMINAL PAIN [None]
  - PYREXIA [None]
  - DIZZINESS [None]
  - DIARRHOEA [None]
  - DYSGEUSIA [None]
  - GASTROINTESTINAL INFLAMMATION [None]
